FAERS Safety Report 8196861-3 (Version None)
Quarter: 2012Q1

REPORT INFORMATION
  Report Type: 
  Country: None (occurrence: None)
  Receive Date: 20120309
  Receipt Date: 20120301
  Transmission Date: 20120608
  Serious: Yes (Other)
  Sender: FDA-Public Use
  Company Number: BE-ABBOTT-12P-013-0910391-03

PATIENT
  Sex: Female

DRUGS (16)
  1. HUMIRA [Suspect]
     Route: 058
     Dates: start: 20101125, end: 20101230
  2. HUMIRA [Suspect]
     Route: 058
     Dates: start: 20110202, end: 20110714
  3. IMMUNOSUPPRESSANTS [Concomitant]
     Indication: CROHN'S DISEASE
  4. HUMIRA [Suspect]
     Indication: CROHN'S DISEASE
     Route: 058
  5. HUMIRA [Suspect]
     Route: 058
     Dates: start: 20080425, end: 20080903
  6. FOLIC ACID [Concomitant]
  7. INTRAVAGINAL CONTRACEPTIVES [Concomitant]
     Indication: CONTRACEPTION
     Dosage: 1 RING
     Dates: start: 20080421
  8. METHOTREXATE [Concomitant]
     Indication: CROHN'S DISEASE
     Dates: start: 20080924, end: 20081118
  9. FOLIC ACID [Concomitant]
     Indication: PROPHYLAXIS
     Dates: start: 20080926, end: 20081118
  10. FOLIC ACID [Concomitant]
     Indication: ADVERSE EVENT
  11. HUMIRA [Suspect]
     Route: 058
     Dates: start: 20100604, end: 20100604
  12. HUMIRA [Suspect]
     Route: 058
     Dates: start: 20100702, end: 20101125
  13. METHOTREXATE [Concomitant]
     Dates: start: 20110714
  14. HUMIRA [Suspect]
     Route: 058
     Dates: start: 20100618, end: 20100618
  15. IMODIUM [Concomitant]
     Indication: DIARRHOEA
     Dates: start: 20070817
  16. FOLIC ACID [Concomitant]
     Dates: start: 20110716

REACTIONS (1)
  - HERNIAL EVENTRATION [None]
